FAERS Safety Report 18987122 (Version 1)
Quarter: 2021Q1

REPORT INFORMATION
  Report Type: Spontaneous
  Country: US (occurrence: US)
  Receive Date: 20210309
  Receipt Date: 20210309
  Transmission Date: 20210420
  Serious: No
  Sender: FDA-Public Use
  Company Number: US-ABBVIE-20K-163-3355515-00

PATIENT
  Sex: Female
  Weight: 93.07 kg

DRUGS (1)
  1. LUPRON DEPOT [Suspect]
     Active Substance: LEUPROLIDE ACETATE
     Indication: ENDOMETRIOSIS
     Route: 030
     Dates: start: 2014

REACTIONS (5)
  - Weight decreased [Not Recovered/Not Resolved]
  - Therapeutic response shortened [Not Recovered/Not Resolved]
  - Gastrointestinal disorder [Unknown]
  - Liver disorder [Unknown]
  - Endometriosis [Not Recovered/Not Resolved]
